FAERS Safety Report 11502128 (Version 1)
Quarter: 2015Q3

REPORT INFORMATION
  Report Type: Spontaneous
  Country: US (occurrence: US)
  Receive Date: 20150914
  Receipt Date: 20150914
  Transmission Date: 20151125
  Serious: Yes (Other)
  Sender: FDA-Public Use
  Company Number: US-GE HEALTHCARE MEDICAL DIAGNOSTICS-OPTN-PR-1509S-0010

PATIENT
  Age: 73 Year
  Sex: Male

DRUGS (2)
  1. OPTISON [Suspect]
     Active Substance: ALBUMIN (HUMAN)
     Indication: DIAGNOSTIC PROCEDURE
  2. OPTISON [Suspect]
     Active Substance: ALBUMIN (HUMAN)
     Indication: SEPSIS
     Route: 042
     Dates: start: 20150908, end: 20150908

REACTIONS (3)
  - Back pain [Unknown]
  - Respiratory arrest [Unknown]
  - Seizure [Unknown]

NARRATIVE: CASE EVENT DATE: 20150908
